FAERS Safety Report 6084329-X (Version None)
Quarter: 2009Q1

REPORT INFORMATION
  Report Type: 
  Country: None (occurrence: None)
  Receive Date: 20090217
  Receipt Date: 20090203
  Transmission Date: 20090719
  Serious: Yes (Death, Hospitalization, Other)
  Sender: FDA-Public Use
  Company Number: 2009AL000719

PATIENT
  Age: 19 Year
  Sex: Female
  Weight: 31 kg

DRUGS (2)
  1. FEVERALL [Suspect]
     Dosage: IV
     Route: 042
  2. SEVOFLURANE [Concomitant]

REACTIONS (2)
  - HEPATIC FAILURE [None]
  - OVERDOSE [None]
